FAERS Safety Report 7669374-2 (Version None)
Quarter: 2011Q3

REPORT INFORMATION
  Report Type: 
  Country: None (occurrence: None)
  Receive Date: 20110808
  Receipt Date: 20110727
  Transmission Date: 20111222
  Serious: Yes (Hospitalization)
  Sender: FDA-Public Use
  Company Number: IT-ROCHE-792648

PATIENT
  Sex: Female

DRUGS (2)
  1. BEVACIZUMAB [Suspect]
     Route: 042
     Dates: start: 20100122, end: 20110110
  2. PACLITAXEL [Concomitant]
     Route: 042
     Dates: start: 20100122, end: 20110715

REACTIONS (2)
  - CONGESTIVE CARDIOMYOPATHY [None]
  - ANGINA PECTORIS [None]
